FAERS Safety Report 6593802-7 (Version None)
Quarter: 2010Q1

REPORT INFORMATION
  Report Type: 
  Country: None (occurrence: None)
  Receive Date: 20100212
  Receipt Date: 20100203
  Transmission Date: 20100710
  Serious: Yes (Life-Threatening, Hospitalization, Other)
  Sender: FDA-Public Use
  Company Number: 2010SP007427

PATIENT
  Age: 29 Year
  Sex: Female

DRUGS (3)
  1. CHORIONIC GONADOTROPIN [Suspect]
     Indication: OVULATION INDUCTION
  2. METFORMIN (CON.) [Concomitant]
  3. CLOMIFENE (CON.) [Concomitant]

REACTIONS (9)
  - ABDOMINAL PAIN [None]
  - ABORTION THREATENED [None]
  - GENITAL HAEMORRHAGE [None]
  - INFLAMMATION [None]
  - LYMPHADENOPATHY [None]
  - OVARIAN ENLARGEMENT [None]
  - PERITONITIS [None]
  - UTERINE TENDERNESS [None]
  - VOMITING [None]
